FAERS Safety Report 9718782 (Version 1)
Quarter: 2013Q4

REPORT INFORMATION
  Report Type: Report from Study
  Country: CN (occurrence: CN)
  Receive Date: 20131127
  Receipt Date: 20131127
  Transmission Date: 20140711
  Serious: Yes (Other)
  Sender: FDA-Public Use
  Company Number: CN-ASTELLAS-2013US012453

PATIENT
  Age: 50 Year
  Sex: Female

DRUGS (1)
  1. ERLOTINIB TABLET [Suspect]
     Indication: NON-SMALL CELL LUNG CANCER
     Dosage: 150 MG, UID/QD
     Route: 048
     Dates: start: 20111019

REACTIONS (4)
  - Pericardial effusion [Not Recovered/Not Resolved]
  - Lymphangiopathy [Not Recovered/Not Resolved]
  - Disease progression [Not Recovered/Not Resolved]
  - Lung cancer metastatic [Not Recovered/Not Resolved]
